FAERS Safety Report 5131803-6 (Version None)
Quarter: 2006Q4

REPORT INFORMATION
  Report Type: 
  Country: None (occurrence: None)
  Receive Date: 20061016
  Receipt Date: 20061003
  Transmission Date: 20070319
  Serious: Yes (Hospitalization)
  Sender: FDA-Public Use
  Company Number: 2006106099

PATIENT
  Age: 73 Year
  Sex: Male
  Weight: 90 kg

DRUGS (12)
  1. LIPITOR [Suspect]
     Indication: DRUG USE FOR UNKNOWN INDICATION
     Dosage: 20 MG (20 MG, 1 IN 1 D), ORAL
     Route: 048
  2. PANTOPRAZOLE SODIUM [Concomitant]
  3. IRBESARTAN [Concomitant]
  4. ASPIRIN [Concomitant]
  5. DILTIAZEM [Concomitant]
  6. NOVOSEMIDE (FUROSEMIDE) [Concomitant]
  7. FERROUS SULFATE TAB [Concomitant]
  8. ZOPICLONE ZOPICLONE) [Concomitant]
  9. METFORMIN HCL [Concomitant]
  10. TAMSULOSIN HCL [Concomitant]
  11. PIOGLITAZONE HCL [Concomitant]
  12. GLYBURIDE [Concomitant]

REACTIONS (4)
  - ANAEMIA [None]
  - DIVERTICULUM INTESTINAL [None]
  - DYSPNOEA [None]
  - VIRAL PERICARDITIS [None]
